FAERS Safety Report 6287575-5 (Version None)
Quarter: 2009Q3

REPORT INFORMATION
  Report Type: 
  Country: None (occurrence: None)
  Receive Date: 20090727
  Receipt Date: 20090721
  Transmission Date: 20100115
  Serious: Yes (Other)
  Sender: FDA-Public Use
  Company Number: 2009SP016207

PATIENT
  Sex: Male

DRUGS (3)
  1. MIRALAX [Suspect]
     Dosage: 17 GM; BID; PO
     Route: 048
  2. BLOOD PRESSURE MEDICATION [Concomitant]
  3. THYROID MEDICATION [Concomitant]

REACTIONS (1)
  - HAEMATOCHEZIA [None]
